FAERS Safety Report 9333757 (Version 2)
Quarter: 2013Q3

REPORT INFORMATION
  Report Type: Spontaneous
  Country: AU (occurrence: AU)
  Receive Date: 20130606
  Receipt Date: 20130802
  Transmission Date: 20140515
  Serious: Yes (Death)
  Sender: FDA-Public Use
  Company Number: AU-BRISTOL-MYERS SQUIBB COMPANY-18975946

PATIENT
  Age: 76 Year
  Sex: Male

DRUGS (1)
  1. BYETTA [Suspect]
     Indication: DIABETES MELLITUS INADEQUATE CONTROL
     Dosage: INCREASED TO 10MCG?02FEB11-24MAR11?SC,10MCG:24MAR11-10JUN11
     Route: 058
     Dates: start: 20110202, end: 20110610

REACTIONS (1)
  - Pancreatic carcinoma [Fatal]
